FAERS Safety Report 13046957 (Version 4)
Quarter: 2025Q1

REPORT INFORMATION
  Report Type: Spontaneous
  Country: CH (occurrence: CH)
  Receive Date: 20161220
  Receipt Date: 20250227
  Transmission Date: 20250408
  Serious: Yes (Congenital Anomaly, Other)
  Sender: TEVA
  Company Number: CH-TEVA-719692ISR

PATIENT

DRUGS (1)
  1. CYCLOSPORINE [Suspect]
     Active Substance: CYCLOSPORINE
     Indication: Immunosuppressant drug therapy
     Route: 065

REACTIONS (2)
  - Congenital anomaly [Unknown]
  - Paternal exposure timing unspecified [Unknown]
